FAERS Safety Report 4738571-8 (Version None)
Quarter: 2005Q3

REPORT INFORMATION
  Report Type: 
  Country: None (occurrence: None)
  Receive Date: 20050808
  Receipt Date: 20050808
  Transmission Date: 20060218
  Serious: Yes (Death, Hospitalization)
  Sender: FDA-Public Use
  Company Number: None

PATIENT
  Sex: Male
  Weight: 92.7 kg

DRUGS (8)
  1. CYTARABINE [Suspect]
     Indication: ACUTE LYMPHOCYTIC LEUKAEMIA
     Dosage: SEE IMAGE
     Dates: start: 20050623, end: 20050623
  2. DAUNORUBICIN HCL [Suspect]
     Dosage: SEE IMAGE
     Dates: start: 20050623, end: 20050707
  3. DEXAMETHASONE [Suspect]
     Dosage: SEE IMAGE
     Dates: start: 20050623, end: 20050706
  4. METHOTREXATE [Suspect]
     Dosage: SEE IMAGE
     Dates: start: 20050630, end: 20050709
  5. METHOTREXATE [Suspect]
     Dosage: SEE IMAGE
     Dates: start: 20050623
  6. PEG-L-ASPARAGINASE (-H) [Suspect]
     Dosage: SEE IMAGE
     Dates: start: 20050627, end: 20050627
  7. PEG-L-ASPARAGINASE (-H) [Suspect]
     Dosage: SEE IMAGE
     Dates: start: 20050623
  8. VINCRISTINE SULFATE [Suspect]
     Dosage: SEE IMAGE
     Dates: start: 20050623, end: 20050707

REACTIONS (20)
  - ATELECTASIS [None]
  - BACTERAEMIA [None]
  - BLOOD CULTURE POSITIVE [None]
  - BONE MARROW DEPRESSION [None]
  - CAECITIS [None]
  - COAGULOPATHY [None]
  - ECCHYMOSIS [None]
  - ENTEROCOCCAL SEPSIS [None]
  - HAEMODIALYSIS [None]
  - HYPERGLYCAEMIA [None]
  - HYPERURICAEMIA [None]
  - HYPOTENSION [None]
  - INFECTION [None]
  - NEUTROPHIL COUNT DECREASED [None]
  - OXYGEN SATURATION DECREASED [None]
  - PNEUMONIA [None]
  - POOR PERIPHERAL CIRCULATION [None]
  - RENAL FAILURE [None]
  - STAPHYLOCOCCAL INFECTION [None]
  - TUMOUR LYSIS SYNDROME [None]
